FAERS Safety Report 10553837 (Version 1)
Quarter: 2014Q4

REPORT INFORMATION
  Report Type: Spontaneous
  Country: US (occurrence: None)
  Receive Date: 20141023
  Receipt Date: 20141023
  Transmission Date: 20150529
  Serious: No
  Sender: FDA-Public Use
  Company Number: AP356-01151-SPO-US

PATIENT
  Age: 53 Year
  Sex: Female
  Weight: 127 kg

DRUGS (3)
  1. BELVIQ [Suspect]
     Active Substance: LORCASERIN HYDROCHLORIDE
     Indication: WEIGHT DECREASED
     Route: 048
     Dates: start: 201404, end: 20140801
  2. ASPIRIN (ACETYLSALICYLIC ACID) [Concomitant]
     Active Substance: ASPIRIN
  3. FISH OIL  (FISH OIL) [Concomitant]
     Active Substance: FISH OIL

REACTIONS (1)
  - Cough [None]

NARRATIVE: CASE EVENT DATE: 201405
